FAERS Safety Report 8971205 (Version 3)
Quarter: 2013Q1

REPORT INFORMATION
  Report Type: Spontaneous
  Country: US (occurrence: US)
  Receive Date: 20121217
  Receipt Date: 20130307
  Transmission Date: 20140127
  Serious: Yes (Death)
  Sender: FDA-Public Use
  Company Number: US-GLAXOSMITHKLINE-A1005230A

PATIENT
  Age: 81 Year
  Sex: Male

DRUGS (10)
  1. ADVAIR [Suspect]
     Indication: ASTHMA
     Dosage: 1PUFF TWICE PER DAY
     Route: 055
  2. SPIRIVA [Concomitant]
  3. DIOVAN [Concomitant]
  4. LIPITOR [Concomitant]
  5. PLAVIX [Concomitant]
  6. METOPROLOL [Concomitant]
  7. NIASPAN [Concomitant]
  8. NITROGLYCERIN [Concomitant]
  9. ASPIRIN [Concomitant]
  10. AMLODIPINE [Concomitant]

REACTIONS (4)
  - Acute myocardial infarction [Fatal]
  - Arteriosclerosis coronary artery [Fatal]
  - Bile duct cancer [Fatal]
  - Pancreatic carcinoma [Unknown]
